FAERS Safety Report 21089286 (Version 1)
Quarter: 2022Q3

REPORT INFORMATION
  Report Type: Spontaneous
  Country: US (occurrence: None)
  Receive Date: 20220715
  Receipt Date: 20220715
  Transmission Date: 20221026
  Serious: Yes (Hospitalization)
  Sender: FDA-Public Use
  Company Number: None

PATIENT
  Sex: Female
  Weight: 97.07 kg

DRUGS (21)
  1. CAPECITABINE [Suspect]
     Active Substance: CAPECITABINE
     Indication: Breast cancer
     Dosage: 1000MG TWICE DAILY ORA - 14 DAYS ON, 7 OFF??THERAPY DATE START:  NOV-2022?
     Route: 048
  2. ANASTROZOLE [Concomitant]
     Active Substance: ANASTROZOLE
  3. ARNUITY ELLIPTA [Concomitant]
     Active Substance: FLUTICASONE FUROATE
  4. ATIVAN [Concomitant]
     Active Substance: LORAZEPAM
  5. CARVEDILOL [Concomitant]
     Active Substance: CARVEDILOL
  6. CITALOPRAM [Concomitant]
     Active Substance: CITALOPRAM HYDROBROMIDE
  7. DEXAMETHASONE [Concomitant]
     Active Substance: DEXAMETHASONE
  8. KEPPRA [Concomitant]
     Active Substance: LEVETIRACETAM
  9. LASIX [Concomitant]
     Active Substance: FUROSEMIDE
  10. LIPITOR [Concomitant]
     Active Substance: ATORVASTATIN CALCIUM
  11. METFORMIN [Concomitant]
     Active Substance: METFORMIN HYDROCHLORIDE
  12. NYSTATIN [Concomitant]
     Active Substance: NYSTATIN
  13. PERCOCET [Concomitant]
     Active Substance: ACETAMINOPHEN\OXYCODONE HYDROCHLORIDE
  14. POTASSIUM CHLORIDE [Concomitant]
     Active Substance: POTASSIUM CHLORIDE
  15. SINGULAIR [Concomitant]
     Active Substance: MONTELUKAST SODIUM
  16. SPIRONOLACTONE [Concomitant]
     Active Substance: SPIRONOLACTONE
  17. TRAMADOL [Concomitant]
     Active Substance: TRAMADOL
  18. TUKYSA [Concomitant]
     Active Substance: TUCATINIB
  19. VENTOLIN HFA [Concomitant]
     Active Substance: ALBUTEROL SULFATE
  20. VITAMIN D3 [Concomitant]
     Active Substance: CHOLECALCIFEROL
  21. XARELTO [Concomitant]
     Active Substance: RIVAROXABAN

REACTIONS (2)
  - Hemiparesis [None]
  - Therapy interrupted [None]
